FAERS Safety Report 26190074 (Version 1)
Quarter: 2025Q4

REPORT INFORMATION
  Report Type: Spontaneous
  Country: TR (occurrence: TR)
  Receive Date: 20251223
  Receipt Date: 20251223
  Transmission Date: 20260117
  Serious: Yes (Hospitalization, Other)
  Sender: CELLTRION
  Company Number: TR-CELLTRION INC.-2025TR045719

PATIENT

DRUGS (3)
  1. RITUXIMAB [Suspect]
     Active Substance: RITUXIMAB
     Indication: Follicular lymphoma
  2. ARTEMETHER\LUMEFANTRINE [Suspect]
     Active Substance: ARTEMETHER\LUMEFANTRINE
     Indication: Plasmodium falciparum infection
     Dosage: FOUR TABLETS PER DOSE AT 0, 8, 24, 36, 48, AND 60 HOURS (24 TABLETS OVER THREE DAYS)
     Route: 048
  3. ARTEMETHER\LUMEFANTRINE [Suspect]
     Active Substance: ARTEMETHER\LUMEFANTRINE
     Dosage: EXTENDED BY AN ADDITIONAL TWO DAYS (TOTAL 40 TABLETS OVER FIVE DAYS)
     Route: 048

REACTIONS (2)
  - Immunosuppression [Recovered/Resolved]
  - Haemolytic anaemia [Recovered/Resolved]
